FAERS Safety Report 7761855-6 (Version None)
Quarter: 2011Q3

REPORT INFORMATION
  Report Type: 
  Country: None (occurrence: None)
  Receive Date: 20110920
  Receipt Date: 20110906
  Transmission Date: 20111222
  Serious: Yes (Other)
  Sender: FDA-Public Use
  Company Number: US-SANOFI-AVENTIS-2011SA057377

PATIENT
  Age: 68 Year
  Sex: Male
  Weight: 84 kg

DRUGS (4)
  1. LOVENOX [Suspect]
     Route: 065
     Dates: start: 20090101, end: 20090101
  2. LOVENOX [Suspect]
     Route: 065
     Dates: start: 20110601, end: 20110601
  3. LOVENOX [Suspect]
     Route: 065
     Dates: start: 20110601, end: 20110601
  4. LOVENOX [Suspect]
     Route: 065
     Dates: start: 20110601

REACTIONS (10)
  - BRAIN OEDEMA [None]
  - INAPPROPRIATE SCHEDULE OF DRUG ADMINISTRATION [None]
  - WEIGHT DECREASED [None]
  - THROMBOSIS [None]
  - HAEMATOMA [None]
  - ABDOMINAL DISTENSION [None]
  - EYE HAEMORRHAGE [None]
  - FATIGUE [None]
  - INJECTION SITE REACTION [None]
  - INJECTION SITE HAEMORRHAGE [None]
